FAERS Safety Report 9076958 (Version 1)
Quarter: 2013Q1

REPORT INFORMATION
  Report Type: Report from Study
  Country: US (occurrence: US)
  Receive Date: 20130129
  Receipt Date: 20130129
  Transmission Date: 20140127
  Serious: No
  Sender: FDA-Public Use
  Company Number: US-ABBOTT-12P-163-0936540-00

PATIENT
  Sex: Male

DRUGS (7)
  1. HUMIRA 40 MG/0.8 ML PEN [Suspect]
     Indication: SPONDYLOARTHROPATHY
     Dates: start: 20120423
  2. PREDNISONE [Concomitant]
     Indication: SPONDYLOARTHROPATHY
  3. METHOTREXATE [Concomitant]
     Indication: SPONDYLOARTHROPATHY
  4. METHOTREXATE [Concomitant]
  5. FOLIC ACID [Concomitant]
     Indication: SPONDYLOARTHROPATHY
     Dosage: DAILY
  6. VITAMINS [Concomitant]
     Indication: SPONDYLOARTHROPATHY
     Dosage: DAILY
  7. VITAMIN D [Concomitant]
     Indication: SPONDYLOARTHROPATHY
     Dosage: DAILY

REACTIONS (4)
  - Myalgia [Not Recovered/Not Resolved]
  - Arthralgia [Not Recovered/Not Resolved]
  - Pain [Recovered/Resolved]
  - Injection site haemorrhage [Recovered/Resolved]
